FAERS Safety Report 8118216-X (Version None)
Quarter: 2012Q1

REPORT INFORMATION
  Report Type: 
  Country: None (occurrence: None)
  Receive Date: 20120202
  Receipt Date: 20120125
  Transmission Date: 20120608
  Serious: Yes (Other)
  Sender: FDA-Public Use
  Company Number: GER/GER/12/0022805

PATIENT
  Age: 36 Year
  Sex: Female
  Weight: 104 kg

DRUGS (4)
  1. XIPAMIDE (XIPAMIDE) [Suspect]
     Indication: OEDEMA
     Dosage: 10 MG, 1 IN 1 D, ORAL
     Route: 048
     Dates: start: 20110115, end: 20110415
  2. GYNVITAL (FOLIC ACID) [Concomitant]
  3. RAMIPRIL [Suspect]
     Indication: HYPERTENSION
     Dosage: 2.5 MG, 1 IN 1 D, ORAL
     Route: 048
     Dates: start: 20101228, end: 20110315
  4. AVELOX [Concomitant]

REACTIONS (2)
  - MATERNAL EXPOSURE DURING PREGNANCY [None]
  - PRE-ECLAMPSIA [None]
